FAERS Safety Report 15831735 (Version 2)
Quarter: 2019Q1

REPORT INFORMATION
  Report Type: Spontaneous
  Country: US (occurrence: US)
  Receive Date: 20190116
  Receipt Date: 20190326
  Transmission Date: 20190417
  Serious: No
  Sender: FDA-Public Use
  Company Number: US-009507513-1901USA002291

PATIENT
  Age: 37 Year
  Sex: Female

DRUGS (6)
  1. LETROZOLE. [Concomitant]
     Active Substance: LETROZOLE
  2. FOLLISTIM AQ [Suspect]
     Active Substance: FOLLITROPIN
     Indication: INFERTILITY FEMALE
     Dosage: STRENGTH 300 IU/0.36 ML, DOSE 75 U, FREQUENCY 8-10 DAYS
     Route: 058
     Dates: start: 20180504
  3. DOXYCYCLINE. [Concomitant]
     Active Substance: DOXYCYCLINE
  4. NOVAREL [Concomitant]
     Active Substance: CHORIOGONADOTROPIN ALFA
  5. GONAL-F [Concomitant]
     Active Substance: FOLLITROPIN
  6. FOLLISTIM AQ [Suspect]
     Active Substance: FOLLITROPIN
     Dosage: STRENGTH 300 IU/0.36 ML, DOSE 150 U, QPM
     Route: 058
     Dates: start: 20190106, end: 20190110

REACTIONS (2)
  - Swelling face [Unknown]
  - Mood altered [Not Recovered/Not Resolved]

NARRATIVE: CASE EVENT DATE: 201901
